FAERS Safety Report 19034988 (Version 2)
Quarter: 2021Q1

REPORT INFORMATION
  Report Type: Spontaneous
  Country: JP (occurrence: JP)
  Receive Date: 20210320
  Receipt Date: 20210331
  Transmission Date: 20210420
  Serious: Yes (Hospitalization)
  Sender: FDA-Public Use
  Company Number: JP-ASTRAZENECA-2019SE86962

PATIENT
  Age: 55 Year
  Sex: Female
  Weight: 47 kg

DRUGS (15)
  1. LYNPARZA [Suspect]
     Active Substance: OLAPARIB
     Indication: OVARIAN CANCER
     Route: 048
     Dates: start: 20200612, end: 20200710
  2. LYNPARZA [Suspect]
     Active Substance: OLAPARIB
     Indication: OVARIAN CANCER
     Route: 048
     Dates: start: 20190401, end: 20190530
  3. LYNPARZA [Suspect]
     Active Substance: OLAPARIB
     Indication: OVARIAN CANCER
     Route: 048
     Dates: start: 20190628
  4. LYNPARZA [Suspect]
     Active Substance: OLAPARIB
     Indication: OVARIAN CANCER
     Route: 048
     Dates: start: 20200330, end: 20200515
  5. LYNPARZA [Suspect]
     Active Substance: OLAPARIB
     Indication: OVARIAN CANCER
     Route: 048
     Dates: start: 20201023, end: 20201211
  6. IRINOTECAN HYDROCHLORIDE HYDRATE [Suspect]
     Active Substance: IRINOTECAN HYDROCHLORIDE
     Indication: NEUROPATHY PERIPHERAL
     Route: 065
  7. LYNPARZA [Suspect]
     Active Substance: OLAPARIB
     Indication: OVARIAN CANCER
     Route: 048
     Dates: start: 20200731, end: 20201009
  8. LYNPARZA [Suspect]
     Active Substance: OLAPARIB
     Indication: OVARIAN CANCER
     Route: 048
     Dates: start: 2020, end: 20201210
  9. METHYCOBAL [Suspect]
     Active Substance: METHYLCOBALAMIN
     Indication: NEUROPATHY PERIPHERAL
     Route: 048
     Dates: start: 20150901
  10. PACLITAXEL. [Concomitant]
     Active Substance: PACLITAXEL
     Indication: OVARIAN CANCER RECURRENT
     Route: 065
  11. PACLITAXEL. [Concomitant]
     Active Substance: PACLITAXEL
     Indication: OVARIAN CANCER RECURRENT
     Route: 065
     Dates: start: 20200311
  12. CISPLATIN. [Concomitant]
     Active Substance: CISPLATIN
     Indication: OVARIAN CANCER RECURRENT
     Route: 065
     Dates: end: 20200311
  13. METHYCOBAL [Suspect]
     Active Substance: METHYLCOBALAMIN
     Indication: NEUROPATHY PERIPHERAL
     Route: 048
     Dates: start: 20150901
  14. AVASTIN [Concomitant]
     Active Substance: BEVACIZUMAB
     Indication: OVARIAN CANCER RECURRENT
     Route: 065
     Dates: end: 201909
  15. CARBOPLATIN. [Concomitant]
     Active Substance: CARBOPLATIN
     Indication: OVARIAN CANCER RECURRENT
     Route: 065
     Dates: end: 201511

REACTIONS (5)
  - Diarrhoea [Unknown]
  - Renal impairment [Recovered/Resolved]
  - Febrile neutropenia [Unknown]
  - Stomatitis [Recovering/Resolving]
  - Anaemia [Recovered/Resolved]

NARRATIVE: CASE EVENT DATE: 20190501
